FAERS Safety Report 14671160 (Version 1)
Quarter: 2018Q1

REPORT INFORMATION
  Report Type: Spontaneous
  Country: US (occurrence: US)
  Receive Date: 20180322
  Receipt Date: 20180322
  Transmission Date: 20180509
  Serious: Yes (Hospitalization)
  Sender: FDA-Public Use
  Company Number: None

PATIENT
  Age: 17 Year
  Sex: Female
  Weight: 117 kg

DRUGS (6)
  1. CYTARABINE. [Suspect]
     Active Substance: CYTARABINE
     Dates: end: 20180302
  2. METHOTREXATE. [Suspect]
     Active Substance: METHOTREXATE
     Dates: end: 20180309
  3. DAUNORUBICIN [Suspect]
     Active Substance: DAUNORUBICIN
     Dates: end: 20180309
  4. VINCRISTINE SULFATE. [Suspect]
     Active Substance: VINCRISTINE SULFATE
     Dates: end: 20180309
  5. PREDNISONE. [Suspect]
     Active Substance: PREDNISONE
     Dates: end: 20180314
  6. ONCASPAR [Suspect]
     Active Substance: PEGASPARGASE
     Dates: end: 20180305

REACTIONS (10)
  - Feeling cold [None]
  - Muscular weakness [None]
  - Peripheral swelling [None]
  - Mobility decreased [None]
  - Facial paralysis [None]
  - Seizure [None]
  - Cerebral haemorrhage [None]
  - Superior sagittal sinus thrombosis [None]
  - Limb discomfort [None]
  - Hypotension [None]

NARRATIVE: CASE EVENT DATE: 20180314
